FAERS Safety Report 13919210 (Version 7)
Quarter: 2018Q1

REPORT INFORMATION
  Report Type: Spontaneous
  Country: CA (occurrence: CA)
  Receive Date: 20170830
  Receipt Date: 20180103
  Transmission Date: 20180508
  Serious: Yes (Hospitalization, Other)
  Sender: FDA-Public Use
  Company Number: CA-ROCHE-1980285

PATIENT
  Sex: Female
  Weight: 85.5 kg

DRUGS (9)
  1. PERJETA [Suspect]
     Active Substance: PERTUZUMAB
     Indication: BREAST CANCER
     Route: 042
     Dates: start: 201305, end: 201708
  2. CIPRALEX [Concomitant]
     Active Substance: ESCITALOPRAM OXALATE
  3. NEXIUM [Concomitant]
     Active Substance: ESOMEPRAZOLE MAGNESIUM
  4. REMERON [Concomitant]
     Active Substance: MIRTAZAPINE
  5. MAXERAN [Suspect]
     Active Substance: METOCLOPRAMIDE HYDROCHLORIDE
     Indication: PRODUCT USED FOR UNKNOWN INDICATION
     Route: 065
  6. TAXOTERE [Suspect]
     Active Substance: DOCETAXEL
     Indication: BREAST CANCER
     Route: 065
  7. SYMBICORT [Concomitant]
     Active Substance: BUDESONIDE\FORMOTEROL FUMARATE DIHYDRATE
  8. HERCEPTIN [Suspect]
     Active Substance: TRASTUZUMAB
     Indication: BREAST CANCER
     Route: 042
     Dates: start: 201305
  9. PACLITAXEL. [Suspect]
     Active Substance: PACLITAXEL
     Indication: BREAST CANCER
     Route: 065
     Dates: start: 2013

REACTIONS (58)
  - Impaired gastric emptying [Unknown]
  - Neuropathy peripheral [Unknown]
  - Alopecia [Unknown]
  - Gait disturbance [Unknown]
  - Vomiting [Unknown]
  - Fatigue [Recovering/Resolving]
  - Onychomadesis [Not Recovered/Not Resolved]
  - Malnutrition [Unknown]
  - Vagus nerve disorder [Unknown]
  - Orthostatic hypotension [Unknown]
  - Constipation [Unknown]
  - Onychomadesis [Recovering/Resolving]
  - Dysgeusia [Not Recovered/Not Resolved]
  - Arthralgia [Not Recovered/Not Resolved]
  - Dehydration [Unknown]
  - Pain [Recovering/Resolving]
  - Pruritus [Unknown]
  - Fall [Unknown]
  - Diarrhoea [Unknown]
  - Hypotension [Unknown]
  - Chest discomfort [Unknown]
  - Autonomic neuropathy [Not Recovered/Not Resolved]
  - Slow speech [Unknown]
  - Malabsorption [Unknown]
  - Nerve injury [Unknown]
  - Fatigue [Unknown]
  - Dyspnoea [Unknown]
  - Pain [Unknown]
  - Drug eruption [Unknown]
  - Depression [Unknown]
  - Feeding disorder [Unknown]
  - Confusional state [Unknown]
  - Tinnitus [Not Recovered/Not Resolved]
  - Asthenia [Not Recovered/Not Resolved]
  - Stress [Unknown]
  - Heart rate increased [Recovering/Resolving]
  - Weight increased [Unknown]
  - Rash [Unknown]
  - Drug intolerance [Unknown]
  - Cardiac disorder [Unknown]
  - Bone pain [Not Recovered/Not Resolved]
  - Catatonia [Unknown]
  - Extrapyramidal disorder [Unknown]
  - Concussion [Unknown]
  - Cognitive disorder [Unknown]
  - Headache [Unknown]
  - Condition aggravated [Not Recovered/Not Resolved]
  - Tremor [Not Recovered/Not Resolved]
  - Nausea [Unknown]
  - Hypertension [Not Recovered/Not Resolved]
  - Tachycardia [Not Recovered/Not Resolved]
  - Autonomic neuropathy [Unknown]
  - Feeling abnormal [Unknown]
  - Blood pressure fluctuation [Not Recovered/Not Resolved]
  - Dizziness [Not Recovered/Not Resolved]
  - Weight decreased [Unknown]
  - Onychoclasis [Not Recovered/Not Resolved]
  - Nail infection [Unknown]
